FAERS Safety Report 6134405-8 (Version None)
Quarter: 2009Q1

REPORT INFORMATION
  Report Type: 
  Country: None (occurrence: None)
  Receive Date: 20090327
  Receipt Date: 20090318
  Transmission Date: 20090719
  Serious: Yes (Hospitalization, Other)
  Sender: FDA-Public Use
  Company Number: DE-JNJFOC-20090104808

PATIENT
  Age: 75 Year
  Sex: Female
  Weight: 75 kg

DRUGS (4)
  1. DOXORUBICIN HCL [Suspect]
     Dosage: CYCLE 3
     Route: 042
  2. DOXORUBICIN HCL [Suspect]
     Indication: BREAST CANCER
     Dosage: CYCLES 1-2
     Route: 042
  3. RAMIPRIL [Concomitant]
     Indication: HYPERTENSION
     Route: 065
  4. FEMARA [Concomitant]
     Indication: BREAST CANCER
     Route: 065

REACTIONS (1)
  - CEREBRAL HAEMORRHAGE [None]
